FAERS Safety Report 9938385 (Version 2)
Quarter: 2014Q1

REPORT INFORMATION
  Report Type: Report from Study
  Country: US (occurrence: US)
  Receive Date: 20140303
  Receipt Date: 20140303
  Transmission Date: 20141002
  Serious: No
  Sender: FDA-Public Use
  Company Number: US-ABBVIE-11P-163-0701486-00

PATIENT
  Age: 65 Year
  Sex: Female

DRUGS (17)
  1. HUMIRA [Suspect]
     Indication: PSORIASIS
     Dates: start: 20110127
  2. ALPRAZOLAM [Concomitant]
     Indication: ANXIETY
     Dosage: 1 TABLET DAILY
  3. PROZAC [Concomitant]
     Indication: ANXIETY
     Dosage: DAILY
  4. CLOBETASOL [Concomitant]
     Indication: PSORIASIS
     Dosage: 1 APPLICATION TO AFFECTED AREAS BID
  5. LUNESTA [Concomitant]
     Indication: INSOMNIA
     Dosage: 1 TABLET AT BEDTIME
  6. TRILIPIX [Concomitant]
     Indication: BLOOD CHOLESTEROL INCREASED
     Dosage: D.R. 1 TAB AR AT BEDTIME
  7. HYDROXIZINE [Concomitant]
     Indication: PSORIASIS
     Dosage: 25/50 MG EVERY 4 HOURS
  8. MUPRIROCIN [Concomitant]
     Indication: PSORIASIS
     Route: 061
  9. MUPRIROCIN [Concomitant]
     Indication: PSORIASIS
  10. MUPRIROCIN [Concomitant]
     Indication: SCRATCH
  11. MUPRIROCIN [Concomitant]
     Indication: PRURITUS
  12. METFORMIN [Concomitant]
     Indication: TYPE 2 DIABETES MELLITUS
     Dosage: 15/500 MG 1 TABLET BID
  13. TASARAC [Concomitant]
     Indication: PSORIASIS
     Dosage: GEL APPLY TO AFFECTED AREAS AT BEDTIME
     Route: 061
  14. FORTEO [Concomitant]
     Indication: OSTEOPOROSIS
     Dosage: 600 MCG/2.4 ML DAILY
     Route: 058
  15. TRIAMCINOLONE ACETONIDE [Concomitant]
     Indication: PSORIASIS
     Dosage: APPLY TO AFFECTED AREAS BID
  16. VITAMIN D [Concomitant]
     Indication: BLOOD IRON DECREASED
     Dosage: 1 TAB DAILY
  17. B12 [Concomitant]
     Indication: BLOOD IRON DECREASED
     Dosage: 1 TAB DAILY

REACTIONS (2)
  - Inappropriate schedule of drug administration [Unknown]
  - Injection site haemorrhage [Recovering/Resolving]
